FAERS Safety Report 17988308 (Version 1)
Quarter: 2020Q3

REPORT INFORMATION
  Report Type: Other
  Country: US (occurrence: US)
  Receive Date: 20200707
  Receipt Date: 20200707
  Transmission Date: 20201103
  Serious: Yes (Other)
  Sender: FDA-Public Use
  Company Number: US-MIKART, LLC-2087084

PATIENT
  Sex: Female

DRUGS (7)
  1. HYDROCODONE BITARTRATE AND ACETAMINOPHEN [Suspect]
     Active Substance: ACETAMINOPHEN\HYDROCODONE BITARTRATE
     Indication: PAIN
     Route: 048
  2. OXYCONTIN [Concomitant]
     Active Substance: OXYCODONE HYDROCHLORIDE
  3. HYDROCODONE [Concomitant]
     Active Substance: HYDROCODONE
  4. OXYCODONE. [Concomitant]
     Active Substance: OXYCODONE HYDROCHLORIDE
  5. OXYMORPHONE [Concomitant]
     Active Substance: OXYMORPHONE
  6. HYDROMORPHONE [Concomitant]
     Active Substance: HYDROMORPHONE
  7. MORPHINE [Concomitant]
     Active Substance: MORPHINE

REACTIONS (1)
  - Dependence [Unknown]
